FAERS Safety Report 8710598 (Version 3)
Quarter: 2012Q4

REPORT INFORMATION
  Report Type: 
  Country: FR (occurrence: FR)
  Receive Date: 20120807
  Receipt Date: 20120830
  Transmission Date: 20130627
  Serious: Yes (Death, Hospitalization)
  Sender: FDA-Public Use
  Company Number: FR-SANOFI-AVENTIS-2012SA008313

PATIENT
  Age: 82 Year
  Sex: Female

DRUGS (2)
  1. KAYEXALATE [Suspect]
  2. IXABEPILONE [Suspect]
     Route: 042
     Dates: start: 20100602, end: 20111214

REACTIONS (3)
  - Malignant neoplasm progression [Fatal]
  - Hyperkalaemia [Recovered/Resolved]
  - Hypokalaemia [Not Recovered/Not Resolved]
